FAERS Safety Report 4392352-6 (Version None)
Quarter: 2004Q3

REPORT INFORMATION
  Report Type: 
  Country: None (occurrence: None)
  Receive Date: 20040702
  Receipt Date: 20040219
  Transmission Date: 20050211
  Serious: Yes (Other)
  Sender: FDA-Public Use
  Company Number: 2004UW02968

PATIENT
  Age: 86 Year
  Sex: Female

DRUGS (4)
  1. CRESTOR [Suspect]
     Indication: HYPERCHOLESTEROLAEMIA
     Dosage: 10 MG QD PO
     Route: 048
  2. ASPIRIN [Concomitant]
  3. MULTIVITAMIN [Concomitant]
  4. TENORMIN [Concomitant]

REACTIONS (2)
  - ASTHENIA [None]
  - TENSION HEADACHE [None]
